FAERS Safety Report 9981828 (Version 1)
Quarter: 2014Q1

REPORT INFORMATION
  Report Type: Report from Study
  Country: US (occurrence: US)
  Receive Date: 20140307
  Receipt Date: 20140307
  Transmission Date: 20141002
  Serious: No
  Sender: FDA-Public Use
  Company Number: US-ABBVIE-13P-163-1177605-00

PATIENT
  Age: 52 Year
  Sex: Female

DRUGS (6)
  1. HUMIRA [Suspect]
     Indication: PSORIASIS
     Dates: start: 201006
  2. HUMIRA [Suspect]
     Dates: start: 20131201, end: 20131201
  3. HUMIRA [Suspect]
  4. SIMVASTATIN [Concomitant]
     Indication: BLOOD CHOLESTEROL INCREASED
  5. PAXIL GENERIC [Concomitant]
     Indication: ANXIETY
  6. XANAX [Concomitant]
     Indication: ANXIETY
     Dosage: PILL

REACTIONS (2)
  - Psoriasis [Not Recovered/Not Resolved]
  - Injection site pain [Not Recovered/Not Resolved]
